FAERS Safety Report 8272912-2 (Version None)
Quarter: 2012Q2

REPORT INFORMATION
  Report Type: 
  Country: None (occurrence: None)
  Receive Date: 20120409
  Receipt Date: 20120409
  Transmission Date: 20120825
  Serious: Yes (Other)
  Sender: FDA-Public Use
  Company Number: None

PATIENT
  Sex: Male
  Weight: 98.8842 kg

DRUGS (2)
  1. SIMVASTATIN [Suspect]
     Indication: HYPERLIPIDAEMIA
     Dosage: SIMVASTATIN 40 Q DAY P.O.
     Route: 048
     Dates: start: 20040301, end: 20041001
  2. PRAVASTATIN [Suspect]
     Dosage: PRAVASTATIN 40 Q DAY P.O.
     Route: 048
     Dates: start: 20041001, end: 20041201

REACTIONS (4)
  - TREMOR [None]
  - BACK PAIN [None]
  - ABDOMINAL DISTENSION [None]
  - OEDEMA PERIPHERAL [None]
